FAERS Safety Report 4580828-8 (Version None)
Quarter: 2005Q1

REPORT INFORMATION
  Report Type: 
  Country: None (occurrence: None)
  Receive Date: 20050214
  Receipt Date: 20040608
  Transmission Date: 20050727
  Serious: No
  Sender: FDA-Public Use
  Company Number: US-GLAXOSMITHKLINE-A0513837A

PATIENT
  Age: 59 Year
  Sex: Male

DRUGS (6)
  1. LAMICTAL [Suspect]
     Indication: BIPOLAR DISORDER
     Dosage: 25MG PER DAY
     Route: 048
     Dates: start: 20040608
  2. NEXIUM [Concomitant]
     Dosage: 4MG PER DAY
  3. LAMISIL [Concomitant]
     Dosage: 250MG PER DAY
  4. ARTHROTEC [Concomitant]
     Dosage: 50MG PER DAY
  5. PERIOSTAT [Concomitant]
     Dosage: 20MG PER DAY
  6. WELLBUTRIN XL [Concomitant]
     Dosage: 300MG PER DAY
     Route: 048

REACTIONS (4)
  - HYPERHIDROSIS [None]
  - LACRIMATION INCREASED [None]
  - RHINORRHOEA [None]
  - SNEEZING [None]
